FAERS Safety Report 5739184-1 (Version None)
Quarter: 2008Q2

REPORT INFORMATION
  Report Type: 
  Country: None (occurrence: None)
  Receive Date: 20080515
  Receipt Date: 20080513
  Transmission Date: 20081010
  Serious: Yes (Life-Threatening)
  Sender: FDA-Public Use
  Company Number: PHBS2007BR17296

PATIENT
  Age: 62 Year
  Sex: Female
  Weight: 63 kg

DRUGS (6)
  1. FORASEQ [Suspect]
     Indication: ASTHMA
     Dosage: UNK, QD
     Dates: start: 20000101
  2. AMINOPHYLLINE [Concomitant]
     Indication: DYSPNOEA
     Dosage: 1 DF, QD
     Route: 048
  3. BEROTEC [Concomitant]
     Indication: DYSPNOEA
     Dosage: 5 DROPS
  4. ATROVENT [Concomitant]
     Indication: DYSPNOEA
     Dosage: 15 DROPS
  5. AGASTEN [Concomitant]
     Indication: HYPERSENSITIVITY
     Dosage: UNK, PRN
  6. SODIUM CHLORIDE [Concomitant]

REACTIONS (3)
  - CARDIAC ARREST [None]
  - DYSPNOEA [None]
  - RESPIRATORY FAILURE [None]
